FAERS Safety Report 20881109 (Version 3)
Quarter: 2022Q3

REPORT INFORMATION
  Report Type: Report from Study
  Country: BR (occurrence: BR)
  Receive Date: 20220526
  Receipt Date: 20220909
  Transmission Date: 20221026
  Serious: No
  Sender: FDA-Public Use
  Company Number: BR-ABBVIE-22K-020-4410731-00

PATIENT
  Sex: Female
  Weight: 81 kg

DRUGS (1)
  1. RINVOQ [Suspect]
     Active Substance: UPADACITINIB
     Indication: Rheumatoid arthritis
     Route: 048

REACTIONS (2)
  - Medical device implantation [Recovered/Resolved]
  - Cardiac pacemaker replacement [Unknown]

NARRATIVE: CASE EVENT DATE: 20220101
